FAERS Safety Report 5144570-7 (Version None)
Quarter: 2006Q4

REPORT INFORMATION
  Report Type: 
  Country: None (occurrence: None)
  Receive Date: 20061031
  Receipt Date: 20060913
  Transmission Date: 20070319
  Serious: Yes (Other)
  Sender: FDA-Public Use
  Company Number: 2006029569

PATIENT
  Age: 75 Year
  Sex: Female

DRUGS (4)
  1. BEXTRA [Suspect]
     Indication: MUSCULOSKELETAL PAIN
     Dosage: 10 MG (1 IN 1 D)
  2. VERAPAMIL [Concomitant]
  3. PREMARIN [Concomitant]
  4. ZYRTEC [Concomitant]

REACTIONS (1)
  - STEVENS-JOHNSON SYNDROME [None]
